FAERS Safety Report 15627990 (Version 1)
Quarter: 2018Q4

REPORT INFORMATION
  Report Type: Spontaneous
  Country: CN (occurrence: CN)
  Receive Date: 20181116
  Receipt Date: 20181116
  Transmission Date: 20190205
  Serious: Yes (Life-Threatening, Hospitalization)
  Sender: FDA-Public Use
  Company Number: CN-MYLANLABS-2018M1085841

PATIENT
  Age: 43 Year
  Sex: Male
  Weight: 66 kg

DRUGS (6)
  1. ROPIVACAINE. [Suspect]
     Active Substance: ROPIVACAINE HYDROCHLORIDE
     Indication: ANALGESIC THERAPY
     Route: 050
  2. ARAMINE [Concomitant]
     Active Substance: METARAMINOL BITARTRATE
     Indication: PRODUCT USED FOR UNKNOWN INDICATION
     Route: 042
  3. SUFENTANIL [Concomitant]
     Active Substance: SUFENTANIL
     Indication: MAINTENANCE OF ANAESTHESIA
     Dosage: ADMINISTERED INTERMITENTLY
  4. SEVOFLURANE. [Concomitant]
     Active Substance: SEVOFLURANE
     Indication: MAINTENANCE OF ANAESTHESIA
     Route: 050
  5. REMIFENTANIL [Concomitant]
     Active Substance: REMIFENTANIL
     Indication: MAINTENANCE OF ANAESTHESIA
     Route: 050
  6. CISATRACURIUM. [Concomitant]
     Active Substance: CISATRACURIUM
     Indication: PRODUCT USED FOR UNKNOWN INDICATION
     Dosage: ADMINISTERED INTERMITENTLY

REACTIONS (3)
  - Ventricular tachycardia [Recovered/Resolved]
  - Arteriospasm coronary [Recovered/Resolved]
  - Ventricular fibrillation [Recovered/Resolved]
